FAERS Safety Report 21227708 (Version 1)
Quarter: 2022Q3

REPORT INFORMATION
  Report Type: Spontaneous
  Country: US (occurrence: None)
  Receive Date: 20220817
  Receipt Date: 20220817
  Transmission Date: 20221027
  Serious: Yes (Hospitalization)
  Sender: FDA-Public Use
  Company Number: None

PATIENT
  Age: 61 Year
  Sex: Female

DRUGS (1)
  1. EVEROLIMUS [Suspect]
     Active Substance: EVEROLIMUS
     Dosage: 10MMG DAILY ORAL?
     Route: 048
     Dates: start: 202206, end: 202208

REACTIONS (4)
  - Pain [None]
  - Renal impairment [None]
  - Renal impairment [None]
  - Therapy interrupted [None]

NARRATIVE: CASE EVENT DATE: 20220814
